FAERS Safety Report 4519725-2 (Version None)
Quarter: 2004Q4

REPORT INFORMATION
  Report Type: 
  Country: None (occurrence: None)
  Receive Date: 20041207
  Receipt Date: 20041125
  Transmission Date: 20050328
  Serious: Yes (Hospitalization)
  Sender: FDA-Public Use
  Company Number: APCDSS2003000337

PATIENT
  Sex: Female
  Weight: 51 kg

DRUGS (8)
  1. REMICADE [Suspect]
     Indication: CROHN'S DISEASE
     Route: 041
  2. OZEX [Suspect]
     Indication: HEADACHE
     Route: 049
  3. OZEX [Suspect]
     Route: 049
  4. SALAZOPYRIN [Suspect]
     Indication: CROHN'S DISEASE
     Route: 049
  5. PENTASA [Concomitant]
     Indication: CROHN'S DISEASE
     Route: 065
  6. PREDONINE [Concomitant]
     Indication: CROHN'S DISEASE
     Route: 065
  7. ELENTAL [Concomitant]
     Route: 065
  8. ELENTAL [Concomitant]
     Indication: CROHN'S DISEASE
     Route: 065

REACTIONS (4)
  - HEADACHE [None]
  - HEPATOCELLULAR DAMAGE [None]
  - PYREXIA [None]
  - RASH GENERALISED [None]
